FAERS Safety Report 7534008-4 (Version None)
Quarter: 2011Q2

REPORT INFORMATION
  Report Type: 
  Country: None (occurrence: None)
  Receive Date: 20110608
  Receipt Date: 20060814
  Transmission Date: 20111010
  Serious: Yes (Hospitalization)
  Sender: FDA-Public Use
  Company Number: PHEH2006US10354

PATIENT
  Sex: Male

DRUGS (2)
  1. LESCOL XL [Suspect]
     Dosage: UNK, UNK
     Dates: start: 20060723
  2. FLUVASTATIN [Suspect]
     Dosage: UNK
     Dates: start: 20060521

REACTIONS (1)
  - ARRHYTHMIA [None]
